FAERS Safety Report 7724171-4 (Version None)
Quarter: 2011Q3

REPORT INFORMATION
  Report Type: 
  Country: None (occurrence: None)
  Receive Date: 20110901
  Receipt Date: 20110825
  Transmission Date: 20111222
  Serious: Yes (Death, Life-Threatening, Hospitalization)
  Sender: FDA-Public Use
  Company Number: JP-ROCHE-591435

PATIENT
  Sex: Male
  Weight: 44.5 kg

DRUGS (25)
  1. PREDNISOLONE [Suspect]
     Route: 048
     Dates: start: 20090307, end: 20090807
  2. MIGLITOL [Concomitant]
     Dosage: DRUG: SEIBULE (MIGLITOL)
     Route: 048
  3. MIGLITOL [Concomitant]
     Dosage: FORM: TAPE, DRUG: SELTOUCH(FELBINAC)
     Route: 061
  4. RHEUMATREX [Suspect]
     Indication: RHEUMATOID ARTHRITIS
     Route: 048
  5. TOCILIZUMAB [Suspect]
     Route: 041
     Dates: start: 20081024, end: 20081024
  6. PREDNISOLONE [Suspect]
     Indication: RHEUMATOID ARTHRITIS
     Route: 048
     Dates: end: 20090113
  7. PREDNISOLONE [Suspect]
     Route: 048
     Dates: start: 20090206, end: 20090306
  8. PREDNISOLONE [Suspect]
     Route: 048
     Dates: start: 20090808
  9. LANSOPRAZOLE [Concomitant]
     Route: 048
  10. FELBINAC [Concomitant]
     Dosage: DOSE FORM: OINTMENT AND CREAM
     Route: 061
  11. TOCILIZUMAB [Suspect]
     Route: 041
     Dates: start: 20080930, end: 20080930
  12. TOCILIZUMAB [Suspect]
     Route: 041
     Dates: start: 20081217, end: 20081217
  13. ISONIAZID [Concomitant]
     Dosage: FORMULATION: PERORAL AGENT
     Route: 048
     Dates: start: 20080802
  14. MUCOSTA [Concomitant]
     Dosage: FORMULATION: PERORAL AGENT
     Route: 048
  15. TOCILIZUMAB [Suspect]
     Route: 041
     Dates: start: 20090114, end: 20090114
  16. TOCILIZUMAB [Suspect]
     Route: 041
     Dates: start: 20090306, end: 20090306
  17. TOCILIZUMAB [Suspect]
     Route: 041
     Dates: start: 20081119, end: 20081119
  18. TOCILIZUMAB [Suspect]
     Route: 041
     Dates: start: 20090206, end: 20090206
  19. TOCILIZUMAB [Suspect]
     Route: 041
     Dates: start: 20090403, end: 20090403
  20. PREDNISOLONE [Suspect]
     Route: 048
     Dates: start: 20090114, end: 20090205
  21. LOXONIN [Concomitant]
     Dosage: FORMULATION: PERORAL AGENT
     Route: 048
  22. TOCILIZUMAB [Suspect]
     Indication: RHEUMATOID ARTHRITIS
     Route: 041
     Dates: start: 20080827, end: 20080827
  23. TOCILIZUMAB [Suspect]
     Route: 041
     Dates: start: 20100223, end: 20100223
  24. RIMATIL [Concomitant]
     Route: 048
     Dates: start: 20080229
  25. VOLTAREN [Concomitant]
     Dosage: DRUG: VOLTAREN (DICLOFENAC SODIUM), FORM: OINTMENT AND CREAM, DOSAGE IS UNCERTAIN.
     Route: 061

REACTIONS (5)
  - C-REACTIVE PROTEIN INCREASED [None]
  - RESPIRATORY FAILURE [None]
  - BRONCHITIS [None]
  - DEATH [None]
  - SKIN CANCER [None]
